FAERS Safety Report 12452639 (Version 1)
Quarter: 2016Q2

REPORT INFORMATION
  Report Type: Report from Study
  Country: JP (occurrence: JP)
  Receive Date: 20160609
  Receipt Date: 20160609
  Transmission Date: 20160815
  Serious: Yes (Hospitalization)
  Sender: FDA-Public Use
  Company Number: JP-JNJFOC-20131108489

PATIENT
  Age: 78 Year
  Sex: Male
  Weight: 64 kg

DRUGS (23)
  1. RIVAROXABAN [Suspect]
     Active Substance: RIVAROXABAN
     Indication: ATRIAL FIBRILLATION
     Route: 048
     Dates: start: 20120926, end: 20130221
  2. RIVAROXABAN [Suspect]
     Active Substance: RIVAROXABAN
     Indication: THROMBOSIS PROPHYLAXIS
     Route: 048
     Dates: start: 20120926, end: 20130221
  3. CITICOLINE [Concomitant]
     Active Substance: CITICOLINE
     Route: 065
     Dates: start: 20120807, end: 20120820
  4. ALOSITOL [Concomitant]
     Active Substance: ALLOPURINOL
     Route: 048
  5. SEISHOKU [Concomitant]
     Active Substance: SODIUM CHLORIDE
     Route: 065
     Dates: start: 20120808, end: 20120820
  6. PLETAAL [Concomitant]
     Active Substance: CILOSTAZOL
     Route: 048
  7. RADICUT [Concomitant]
     Active Substance: EDARAVONE
     Route: 041
     Dates: start: 20120807, end: 20120820
  8. FAMOTIDINE. [Concomitant]
     Active Substance: FAMOTIDINE
     Route: 048
  9. OZAGREL [Concomitant]
     Active Substance: OZAGREL
     Route: 065
     Dates: start: 20120914, end: 20120924
  10. RIVAROXABAN [Suspect]
     Active Substance: RIVAROXABAN
     Indication: CEREBROVASCULAR ACCIDENT PROPHYLAXIS
     Route: 048
     Dates: start: 20120926, end: 20130221
  11. POLAPREZINC [Concomitant]
     Active Substance: POLAPREZINC
     Indication: PROPHYLAXIS
     Route: 048
     Dates: start: 20120919, end: 20120925
  12. CITICOLINE [Concomitant]
     Active Substance: CITICOLINE
     Route: 065
     Dates: start: 20130222, end: 20130307
  13. ARTIST [Concomitant]
     Active Substance: CARVEDILOL
     Route: 048
  14. EICOSAPENTAENOIC ACID ETHYL ESTER [Concomitant]
     Active Substance: ICOSAPENT ETHYL
     Route: 048
     Dates: start: 20120918
  15. RIVAROXABAN [Suspect]
     Active Substance: RIVAROXABAN
     Indication: THROMBOSIS PROPHYLAXIS
     Route: 048
     Dates: start: 20120810, end: 20120918
  16. RIVAROXABAN [Suspect]
     Active Substance: RIVAROXABAN
     Indication: CEREBROVASCULAR ACCIDENT PROPHYLAXIS
     Route: 048
     Dates: start: 20120810, end: 20120918
  17. LACTEC [Concomitant]
     Active Substance: CALCIUM CHLORIDE ANHYDROUS\POTASSIUM CHLORIDE\SODIUM CHLORIDE\SODIUM LACTATE
     Route: 065
     Dates: start: 20120807, end: 20120820
  18. PLAVIX [Concomitant]
     Active Substance: CLOPIDOGREL BISULFATE
     Route: 048
     Dates: start: 20120815, end: 20120918
  19. ITOROL [Concomitant]
     Active Substance: ISOSORBIDE MONONITRATE
     Route: 048
  20. RIVAROXABAN [Suspect]
     Active Substance: RIVAROXABAN
     Indication: ATRIAL FIBRILLATION
     Route: 048
     Dates: start: 20120810, end: 20120918
  21. PLAVIX [Concomitant]
     Active Substance: CLOPIDOGREL BISULFATE
     Route: 048
     Dates: start: 20130124
  22. DIOVAN [Concomitant]
     Active Substance: VALSARTAN
     Route: 048
  23. OZAGREL [Concomitant]
     Active Substance: OZAGREL
     Route: 065
     Dates: start: 20130222, end: 20130222

REACTIONS (3)
  - Pain in extremity [Recovered/Resolved]
  - Ischaemic stroke [Recovered/Resolved]
  - Embolic stroke [Recovering/Resolving]

NARRATIVE: CASE EVENT DATE: 20120918
